FAERS Safety Report 7592972-1 (Version None)
Quarter: 2011Q2

REPORT INFORMATION
  Report Type: 
  Country: None (occurrence: None)
  Receive Date: 20110609
  Receipt Date: 20110323
  Transmission Date: 20111010
  Serious: No
  Sender: FDA-Public Use
  Company Number: TH-2011-00042

PATIENT
  Age: 57 Year
  Sex: Male

DRUGS (3)
  1. MOBIC [Concomitant]
  2. EGRIFTA [Suspect]
     Indication: LIPODYSTROPHY ACQUIRED
     Dosage: 1 IN 1 D
     Dates: start: 20110301
  3. A LOT OF OTHER MEDICATIONS [Concomitant]

REACTIONS (5)
  - OSTEOPOROSIS [None]
  - PAIN IN EXTREMITY [None]
  - INJECTION SITE HAEMATOMA [None]
  - MUSCLE TIGHTNESS [None]
  - OSTEOARTHRITIS [None]
